FAERS Safety Report 17979895 (Version 3)
Quarter: 2020Q3

REPORT INFORMATION
  Report Type: Report from Study
  Country: US (occurrence: US)
  Receive Date: 20200703
  Receipt Date: 20200917
  Transmission Date: 20201103
  Serious: Yes (Death, Other)
  Sender: FDA-Public Use
  Company Number: NVSC2020US184768

PATIENT
  Age: 45 Year
  Sex: Female

DRUGS (2)
  1. KYMRIAH [Suspect]
     Active Substance: TISAGENLECLEUCEL
     Indication: DIFFUSE LARGE B-CELL LYMPHOMA
     Dosage: UNK (1.3E8 CAR?POSITIVE VIABLE T?CELLS)
     Route: 042
     Dates: start: 2018
  2. BENDAMUSTINE [Concomitant]
     Active Substance: BENDAMUSTINE
     Indication: CHEMOTHERAPY
     Dosage: UNK
     Route: 065

REACTIONS (16)
  - Hypoxia [Unknown]
  - Diffuse large B-cell lymphoma [Fatal]
  - Haematocrit decreased [Unknown]
  - Platelet count decreased [Unknown]
  - Cytokine release syndrome [Recovered/Resolved]
  - Malignant neoplasm progression [Fatal]
  - Thrombocytopenia [Unknown]
  - Hypogammaglobulinaemia [Unknown]
  - Neutrophil count decreased [Unknown]
  - Pyrexia [Unknown]
  - White blood cell count decreased [Unknown]
  - Klebsiella infection [Unknown]
  - Cytopenia [Unknown]
  - Lymphocyte count decreased [Unknown]
  - Haemoglobin decreased [Unknown]
  - Hypotension [Unknown]
